FAERS Safety Report 8117977-3 (Version None)
Quarter: 2012Q1

REPORT INFORMATION
  Report Type: 
  Country: None (occurrence: None)
  Receive Date: 20120207
  Receipt Date: 20120126
  Transmission Date: 20120608
  Serious: Yes (Hospitalization)
  Sender: FDA-Public Use
  Company Number: US-JNJFOC-20120112828

PATIENT
  Sex: Female
  Weight: 79.83 kg

DRUGS (4)
  1. REMICADE [Suspect]
     Indication: PSORIATIC ARTHROPATHY
     Route: 042
     Dates: end: 20110101
  2. KLONOPIN [Concomitant]
     Indication: ANXIETY
     Route: 048
  3. REMICADE [Suspect]
     Route: 042
     Dates: start: 20111001, end: 20111001
  4. METHOTREXATE [Suspect]
     Indication: PSORIATIC ARTHROPATHY
     Route: 048
     Dates: end: 20110101

REACTIONS (9)
  - DRUG INEFFECTIVE [None]
  - ABNORMAL BEHAVIOUR [None]
  - PNEUMONIA [None]
  - LUNG DISORDER [None]
  - VASCULAR OCCLUSION [None]
  - ELECTROCARDIOGRAM CHANGE [None]
  - SPEECH DISORDER [None]
  - MYOCARDIAL INFARCTION [None]
  - CARDIAC DISORDER [None]
